FAERS Safety Report 4407868-3 (Version None)
Quarter: 2004Q3

REPORT INFORMATION
  Report Type: 
  Country: None (occurrence: None)
  Receive Date: 20040726
  Receipt Date: 20040428
  Transmission Date: 20050211
  Serious: Yes (Other)
  Sender: FDA-Public Use
  Company Number: PHNU2004DE01693

PATIENT
  Age: 71 Year
  Sex: Female

DRUGS (2)
  1. CARBAMAZEPINE [Suspect]
     Indication: TRIGEMINAL NEURALGIA
     Dosage: 600MG/DAY
     Route: 048
     Dates: start: 19840101
  2. ASPIRIN [Concomitant]

REACTIONS (2)
  - RETINAL VEIN THROMBOSIS [None]
  - THROMBOSIS [None]
